FAERS Safety Report 11243186 (Version 5)
Quarter: 2016Q1

REPORT INFORMATION
  Report Type: Spontaneous
  Country: BR (occurrence: BR)
  Receive Date: 20150707
  Receipt Date: 20160323
  Transmission Date: 20160525
  Serious: Yes (Hospitalization)
  Sender: FDA-Public Use
  Company Number: BR-PFIZER INC-2015218916

PATIENT
  Age: 57 Year
  Sex: Female
  Weight: 59.6 kg

DRUGS (7)
  1. XARELTO [Concomitant]
     Active Substance: RIVAROXABAN
     Dosage: 1 TABLET OF 20 MG IN THE AFTERNOON
     Dates: start: 2013
  2. OMEPRAZOLE. [Concomitant]
     Active Substance: OMEPRAZOLE
     Dosage: 1 TABLET OF 20 MG IN FASTING
  3. METFORMIN [Concomitant]
     Active Substance: METFORMIN HYDROCHLORIDE
     Dosage: 1 TABLET OF 850 MG AFTER LUNCH
  4. SUTENT [Suspect]
     Active Substance: SUNITINIB MALATE
     Indication: METASTATIC RENAL CELL CARCINOMA
     Dosage: 50 MG, CYCLIC (4X2)
     Route: 048
     Dates: start: 20141101
  5. MODURETIC 5-50 [Concomitant]
     Active Substance: AMILORIDE HYDROCHLORIDE\HYDROCHLOROTHIAZIDE
     Dosage: 1 TABLET IN THE MORNING
     Dates: start: 2010
  6. LIPITOR [Concomitant]
     Active Substance: ATORVASTATIN CALCIUM
     Dosage: 1 TABLET OF 20 MG IN THE EVENING
     Dates: start: 2007
  7. MINERAL OIL. [Concomitant]
     Active Substance: MINERAL OIL
     Indication: CONSTIPATION
     Dosage: UNK, AS NEEDED

REACTIONS (12)
  - Blood creatinine abnormal [Recovered/Resolved]
  - Abdominal pain [Unknown]
  - Disease progression [Unknown]
  - Asthenia [Recovered/Resolved]
  - Feeding disorder [Recovered/Resolved]
  - Nausea [Recovered/Resolved]
  - Metastatic renal cell carcinoma [Unknown]
  - Vomiting [Not Recovered/Not Resolved]
  - Dyspepsia [Unknown]
  - Hypothyroidism [Unknown]
  - Functional gastrointestinal disorder [Not Recovered/Not Resolved]
  - Thyroid disorder [Not Recovered/Not Resolved]

NARRATIVE: CASE EVENT DATE: 201411
